FAERS Safety Report 9160536 (Version 1)
Quarter: 2013Q1

REPORT INFORMATION
  Report Type: Spontaneous
  Country: US (occurrence: None)
  Receive Date: 20130204
  Receipt Date: 20130204
  Transmission Date: 20140127
  Serious: Yes (Other)
  Sender: FDA-Public Use
  Company Number: 2013SA006679

PATIENT
  Sex: Female

DRUGS (1)
  1. ICY HOT VANISHING SCENT [Suspect]
     Dates: start: 20120715

REACTIONS (1)
  - Injury [None]
